FAERS Safety Report 10368429 (Version 3)
Quarter: 2014Q3

REPORT INFORMATION
  Report Type: Spontaneous
  Country: GB (occurrence: GB)
  Receive Date: 20140807
  Receipt Date: 20140916
  Transmission Date: 20150326
  Serious: Yes (Hospitalization, Other)
  Sender: FDA-Public Use
  Company Number: PHFR2014GB005452

PATIENT
  Age: 63 Year
  Sex: Female

DRUGS (16)
  1. EZETIMIBE. [Concomitant]
     Active Substance: EZETIMIBE
     Indication: DIABETES MELLITUS
     Dosage: 10 MG, UNK
     Route: 048
  2. SIMVASTATIN. [Concomitant]
     Active Substance: SIMVASTATIN
     Indication: BLOOD CHOLESTEROL INCREASED
     Dosage: UKN
  3. FORMOTEROL [Concomitant]
     Active Substance: FORMOTEROL
     Dosage: UKN
     Route: 055
  4. ASPIRIN. [Concomitant]
     Active Substance: ASPIRIN
     Dosage: UKN
     Route: 048
     Dates: start: 201408
  5. LANSOPRAZOL [Concomitant]
     Active Substance: LANSOPRAZOLE
     Indication: CARDIAC FAILURE CONGESTIVE
     Dosage: UKN
     Route: 048
     Dates: start: 201408
  6. RAMIPRIL. [Concomitant]
     Active Substance: RAMIPRIL
     Indication: BLOOD PRESSURE INCREASED
     Dosage: UKN
  7. HYOSCINE [Concomitant]
     Active Substance: SCOPOLAMINE
     Indication: SALIVARY HYPERSECRETION
     Dosage: 0.3 MG
     Route: 048
     Dates: start: 201408
  8. METOPROLOL [Concomitant]
     Active Substance: METOPROLOL
     Indication: MYOCARDIAL ISCHAEMIA
     Dosage: UKN
     Route: 048
     Dates: start: 201408
  9. PYRAZINAMID [Concomitant]
     Dosage: UKN
     Route: 055
  10. BUDESONID [Concomitant]
     Active Substance: BUDESONIDE
     Dosage: UKN
     Route: 055
  11. SERTRALINE [Concomitant]
     Active Substance: SERTRALINE HYDROCHLORIDE
     Indication: DEPRESSION
     Dosage: 10 MG
     Route: 048
     Dates: start: 201408
  12. CLOZARIL [Suspect]
     Active Substance: CLOZAPINE
     Indication: SCHIZOPHRENIA
     Dosage: UKN
     Route: 048
     Dates: start: 20031030
  13. METFORMIN [Concomitant]
     Active Substance: METFORMIN HYDROCHLORIDE
     Indication: TYPE 1 DIABETES MELLITUS
     Dosage: 2 G, DAILY
     Route: 048
     Dates: start: 201408
  14. FRUSEMIDE [Concomitant]
     Active Substance: FUROSEMIDE
     Dosage: UNK
     Route: 048
     Dates: start: 201408
  15. CLOZARIL [Suspect]
     Active Substance: CLOZAPINE
     Dosage: 275 MG, DAILY
     Route: 048
  16. INSULIN [Concomitant]
     Active Substance: INSULIN NOS
     Indication: DIABETES MELLITUS
     Dosage: 48 UG DAILY
     Route: 058
     Dates: start: 201408

REACTIONS (2)
  - Aphagia [Unknown]
  - Urinary tract infection [Recovered/Resolved]

NARRATIVE: CASE EVENT DATE: 20140805
